FAERS Safety Report 5069905-5 (Version None)
Quarter: 2006Q3

REPORT INFORMATION
  Report Type: 
  Country: None (occurrence: None)
  Receive Date: 20060731
  Receipt Date: 20060719
  Transmission Date: 20061208
  Serious: Yes (Death, Hospitalization)
  Sender: FDA-Public Use
  Company Number: 2006090907

PATIENT
  Sex: Female

DRUGS (3)
  1. NEURONTIN [Suspect]
     Indication: PAIN IN EXTREMITY
     Dosage: 300 MG (300 MG, 1 IN 1D), UNKNOWN
     Dates: start: 20060712, end: 20060712
  2. CLONAZEPAM [Concomitant]
  3. OXYGEN           (OXYGEN) [Concomitant]

REACTIONS (3)
  - COMA [None]
  - CONDITION AGGRAVATED [None]
  - RESPIRATORY FAILURE [None]
